FAERS Safety Report 9267790 (Version 1)
Quarter: 2013Q2

REPORT INFORMATION
  Report Type: Spontaneous
  Country: US (occurrence: US)
  Receive Date: 20130502
  Receipt Date: 20130502
  Transmission Date: 20140414
  Serious: No
  Sender: FDA-Public Use
  Company Number: US-ALEXION-A201201033

PATIENT
  Sex: Female

DRUGS (11)
  1. SOLIRIS 300MG [Suspect]
     Indication: PAROXYSMAL NOCTURNAL HAEMOGLOBINURIA
     Dosage: 600 MG, UNK
     Route: 042
     Dates: start: 20120326
  2. SOLIRIS 300MG [Suspect]
     Dosage: 900 MG, UNK
     Route: 042
  3. LASIX [Concomitant]
     Dosage: 10 MG, QD
  4. LISINOPRIL [Concomitant]
     Dosage: 10 MG, QD
  5. NADOLOL [Concomitant]
     Dosage: 40 MG, QD
  6. POTASSIUM [Concomitant]
     Dosage: 10 MEQ, QD
  7. RIFAXIMIN [Concomitant]
     Dosage: 550 MG, BID
  8. ARIXTRA [Concomitant]
     Dosage: 5 MG, QD
     Route: 058
  9. IRON [Concomitant]
     Dosage: UNK, QD
  10. FOLIC ACID [Concomitant]
     Dosage: UNK, QD
  11. COLESTIPOL [Concomitant]
     Dosage: 1 G, BID

REACTIONS (3)
  - Skin discolouration [Recovering/Resolving]
  - Skin disorder [Not Recovered/Not Resolved]
  - Dry skin [Not Recovered/Not Resolved]
